FAERS Safety Report 16731116 (Version 1)
Quarter: 2019Q3

REPORT INFORMATION
  Report Type: Spontaneous
  Country: GB (occurrence: GB)
  Receive Date: 20190822
  Receipt Date: 20190822
  Transmission Date: 20191005
  Serious: Yes (Other)
  Sender: FDA-Public Use
  Company Number: GB-MYLANLABS-2019M1078108

PATIENT
  Age: 85 Year
  Sex: Female

DRUGS (5)
  1. KISQALI [Suspect]
     Active Substance: RIBOCICLIB
     Dosage: 400 MILLIGRAM, QD
     Route: 065
     Dates: start: 20180723
  2. KISQALI [Suspect]
     Active Substance: RIBOCICLIB
     Indication: BREAST CANCER
     Dosage: 600 MILLIGRAM, QD
     Route: 065
     Dates: start: 20180514, end: 20180611
  3. KISQALI [Suspect]
     Active Substance: RIBOCICLIB
     Dosage: 600 MILLIGRAM, QD
     Route: 065
     Dates: start: 20180619, end: 20180716
  4. LETROZOLE. [Suspect]
     Active Substance: LETROZOLE
     Indication: BREAST CANCER
     Dosage: UNK
     Route: 065
     Dates: start: 201805
  5. KISQALI [Suspect]
     Active Substance: RIBOCICLIB
     Dosage: 400 MILLIGRAM, QD
     Route: 065
     Dates: start: 20190204

REACTIONS (12)
  - Osteosclerosis [Unknown]
  - Neutropenia [Recovered/Resolved]
  - Back pain [Unknown]
  - Malignant neoplasm progression [Unknown]
  - Spinal compression fracture [Unknown]
  - Dry eye [Unknown]
  - Breast cancer [Unknown]
  - Diarrhoea [Unknown]
  - Metastases to liver [Unknown]
  - Joint swelling [Unknown]
  - Breast pain [Unknown]
  - Fatigue [Unknown]

NARRATIVE: CASE EVENT DATE: 20180529
